FAERS Safety Report 9040598 (Version 1)
Quarter: 2013Q1

REPORT INFORMATION
  Report Type: Report from Study
  Country: US (occurrence: US)
  Receive Date: 20130129
  Receipt Date: 20130129
  Transmission Date: 20140127
  Serious: No
  Sender: FDA-Public Use
  Company Number: US-ABBOTT-12P-163-0890169-00

PATIENT
  Sex: Female

DRUGS (10)
  1. HUMIRA 40 MG/0.8 ML PEN [Suspect]
     Indication: RHEUMATOID ARTHRITIS
     Dates: start: 201108, end: 20120103
  2. TOPAMAX [Concomitant]
     Indication: MIGRAINE
  3. ZOCOR [Concomitant]
     Indication: BLOOD CHOLESTEROL INCREASED
  4. NORINYL [Concomitant]
     Indication: CONTRACEPTION
  5. CLONAZEPAM [Concomitant]
     Indication: ANXIETY
  6. FLEXERIL [Concomitant]
     Indication: PAIN
  7. METHOTREXATE [Concomitant]
     Indication: PRODUCT USED FOR UNKNOWN INDICATION
  8. FENTANYL [Concomitant]
     Indication: PRODUCT USED FOR UNKNOWN INDICATION
     Dosage: PATCH 25 MCG/HR
  9. DILAUDID [Concomitant]
     Indication: PRODUCT USED FOR UNKNOWN INDICATION
  10. FOLIC ACID [Concomitant]
     Indication: PRODUCT USED FOR UNKNOWN INDICATION

REACTIONS (6)
  - Nasopharyngitis [Not Recovered/Not Resolved]
  - Pain [Unknown]
  - Fibromyalgia [Unknown]
  - Dizziness [Unknown]
  - Lethargy [Unknown]
  - Asthenia [Unknown]
